FAERS Safety Report 5454642-5 (Version None)
Quarter: 2007Q3

REPORT INFORMATION
  Report Type: 
  Country: None (occurrence: None)
  Receive Date: 20070917
  Receipt Date: 20060705
  Transmission Date: 20080115
  Serious: No
  Sender: FDA-Public Use
  Company Number: US-ASTRAZENECA-2006UW13887

PATIENT
  Age: 81 Year
  Sex: Female

DRUGS (3)
  1. SEROQUEL [Suspect]
     Indication: AGITATION
  2. SEROQUEL [Suspect]
     Indication: AGGRESSION
  3. SEROQUEL [Suspect]
     Indication: ABNORMAL BEHAVIOUR

REACTIONS (3)
  - DIZZINESS [None]
  - FALL [None]
  - HEADACHE [None]
